FAERS Safety Report 6773066-1 (Version None)
Quarter: 2010Q2

REPORT INFORMATION
  Report Type: 
  Country: None (occurrence: None)
  Receive Date: 20100616
  Receipt Date: 20100604
  Transmission Date: 20101027
  Serious: Yes (Death, Hospitalization)
  Sender: FDA-Public Use
  Company Number: JP-PFIZER INC-2010054792

PATIENT
  Age: 65 Year
  Sex: Female

DRUGS (1)
  1. GABAPEN [Suspect]
     Indication: CANCER PAIN
     Dosage: 400 MG, 1X/DAY
     Route: 048
     Dates: start: 20100426, end: 20100427

REACTIONS (3)
  - DIZZINESS [None]
  - MALIGNANT NEOPLASM PROGRESSION [None]
  - NAUSEA [None]
